FAERS Safety Report 13979752 (Version 1)
Quarter: 2017Q3

REPORT INFORMATION
  Report Type: Spontaneous
  Country: US (occurrence: US)
  Receive Date: 20170914
  Receipt Date: 20170914
  Transmission Date: 20171128
  Serious: No
  Sender: FDA-Public Use
  Company Number: US-ASTELLAS-2017US025493

PATIENT
  Age: 87 Year
  Sex: Male

DRUGS (2)
  1. XTANDI [Suspect]
     Active Substance: ENZALUTAMIDE
     Route: 048
     Dates: start: 20170121, end: 20170626
  2. XTANDI [Suspect]
     Active Substance: ENZALUTAMIDE
     Indication: PRODUCT USED FOR UNKNOWN INDICATION
     Dosage: 120 MG, (MON, WED, FRI); 80 MG REST WEEK  ONCE DAILY
     Route: 065
     Dates: start: 2012

REACTIONS (13)
  - Asthenia [Unknown]
  - Fatigue [Unknown]
  - Wrong technique in product usage process [Unknown]
  - Decreased appetite [Unknown]
  - Headache [Unknown]
  - Fall [Unknown]
  - Irritability [Unknown]
  - Confusional state [Unknown]
  - Concussion [Unknown]
  - Underdose [Unknown]
  - Back pain [Unknown]
  - Inappropriate schedule of drug administration [Unknown]
  - Confusional state [Unknown]

NARRATIVE: CASE EVENT DATE: 201704
